FAERS Safety Report 6939254-6 (Version None)
Quarter: 2010Q3

REPORT INFORMATION
  Report Type: 
  Country: None (occurrence: None)
  Receive Date: 20100824
  Receipt Date: 20100817
  Transmission Date: 20110219
  Serious: Yes (Death, Hospitalization)
  Sender: FDA-Public Use
  Company Number: NL-BAXTER-2010BH021890

PATIENT
  Age: 56 Year
  Sex: Male

DRUGS (7)
  1. CYCLOPHOSPHAMIDE [Suspect]
     Indication: HODGKIN'S DISEASE
     Dosage: GEREDUCEERDE DOSIS
     Route: 042
     Dates: start: 20100607, end: 20100607
  2. DOXORUBICIN HCL [Suspect]
     Indication: HODGKIN'S DISEASE
     Route: 042
     Dates: start: 20100607, end: 20100607
  3. ETOPOSIDE [Suspect]
     Indication: HODGKIN'S DISEASE
     Dosage: DAG 1-3GEREDUCEERDE DOSIS
     Route: 042
     Dates: start: 20100607, end: 20100609
  4. PROCARBAZINE [Suspect]
     Indication: HODGKIN'S DISEASE
     Dosage: DAG 1-7
     Route: 048
     Dates: start: 20100607, end: 20100613
  5. METHYLPREDNISOLONE [Suspect]
     Indication: HODGKIN'S DISEASE
     Dosage: 8 DAGEN GEBRUIKT IN DEZE CYCLUS (NORMAAL DAG 1-14 VAN DE CYCLUS).
     Route: 048
     Dates: start: 20100607, end: 20100615
  6. BLEOMYCIN GENERIC [Suspect]
     Indication: HODGKIN'S DISEASE
     Dosage: VROEGTIJDIG GESTOPT, TOXICITEIT, OP 17-05-2010, LAATSTE DOSIS ONBEKEND (STANDAARD 10MG/M2).
     Route: 042
     Dates: start: 20100517, end: 20100517
  7. VINCRISTINE SULFATE [Suspect]
     Indication: HODGKIN'S DISEASE
     Route: 042
     Dates: start: 20100614, end: 20100614

REACTIONS (1)
  - CEREBRAL INFARCTION [None]
